FAERS Safety Report 9134678 (Version 2)
Quarter: 2013Q1

REPORT INFORMATION
  Report Type: Spontaneous
  Country: US (occurrence: None)
  Receive Date: 20130205
  Receipt Date: 20130213
  Transmission Date: 20140127
  Serious: Yes (Hospitalization)
  Sender: FDA-Public Use
  Company Number: 2013-0152

PATIENT
  Age: 65 Year
  Sex: Female

DRUGS (1)
  1. KYPROLIS (CARFILZOMIB) [Suspect]
     Indication: CARDIAC AMYLOIDOSIS
     Dosage: 2 DOSES ONCE WEEKLY AND THEN 3 WEEKS OFF, OTHER?
     Dates: start: 201208, end: 20130107

REACTIONS (7)
  - Mental status changes [None]
  - Abnormal behaviour [None]
  - Perseveration [None]
  - Memory impairment [None]
  - Disturbance in attention [None]
  - Speech disorder [None]
  - Cardiac amyloidosis [None]
